FAERS Safety Report 11086782 (Version 2)
Quarter: 2015Q2

REPORT INFORMATION
  Report Type: Spontaneous
  Country: AU (occurrence: AU)
  Receive Date: 20150504
  Receipt Date: 20150623
  Transmission Date: 20150821
  Serious: Yes (Other)
  Sender: FDA-Public Use
  Company Number: AU-JNJFOC-20150420309

PATIENT
  Sex: Male

DRUGS (2)
  1. DUROGESIC [Suspect]
     Active Substance: FENTANYL
     Indication: PRODUCT USED FOR UNKNOWN INDICATION
     Route: 062
  2. DUROGESIC [Suspect]
     Active Substance: FENTANYL
     Indication: PRODUCT USED FOR UNKNOWN INDICATION
     Route: 062

REACTIONS (6)
  - Intentional product misuse [Unknown]
  - Product quality issue [Unknown]
  - Respiratory rate decreased [Not Recovered/Not Resolved]
  - Inappropriate schedule of drug administration [Unknown]
  - Wrong technique in drug usage process [Unknown]
  - Loss of consciousness [Not Recovered/Not Resolved]
